FAERS Safety Report 5879410-1 (Version None)
Quarter: 2008Q3

REPORT INFORMATION
  Report Type: 
  Country: None (occurrence: None)
  Receive Date: 20080912
  Receipt Date: 20080910
  Transmission Date: 20090109
  Serious: Yes (Death, Life-Threatening, Hospitalization)
  Sender: FDA-Public Use
  Company Number: B0535406A

PATIENT
  Age: 59 Year
  Sex: Female
  Weight: 50 kg

DRUGS (13)
  1. ARIXTRA [Suspect]
     Indication: PULMONARY EMBOLISM
     Dosage: 7.5MG PER DAY
     Route: 058
     Dates: start: 20080822, end: 20080824
  2. PREVISCAN [Suspect]
     Indication: PULMONARY EMBOLISM
     Dosage: 15MG PER DAY
     Route: 048
     Dates: start: 20080819, end: 20080826
  3. ASPIRIN [Suspect]
     Dosage: 75MG PER DAY
     Route: 048
     Dates: end: 20080827
  4. NEORAL [Concomitant]
     Route: 048
  5. CELLCEPT [Concomitant]
     Route: 048
  6. INIPOMP [Concomitant]
     Route: 065
  7. BACTRIM [Concomitant]
     Route: 048
  8. ORACILLINE [Concomitant]
     Route: 048
  9. ROXITHROMYCIN [Concomitant]
     Route: 065
     Dates: start: 20080819
  10. CORTANCYL [Concomitant]
     Route: 065
  11. IRBESARTAN [Concomitant]
     Route: 065
  12. HYDROCORTISONE TAB [Concomitant]
     Route: 065
  13. PRAVASTATIN [Concomitant]
     Route: 065

REACTIONS (9)
  - ACTIVATED PARTIAL THROMBOPLASTIN TIME ABNORMAL [None]
  - ANAEMIA [None]
  - GENERAL PHYSICAL HEALTH DETERIORATION [None]
  - HAEMATOMA [None]
  - HAEMODYNAMIC INSTABILITY [None]
  - HYPOTENSION [None]
  - RENAL FAILURE [None]
  - SHOCK HAEMORRHAGIC [None]
  - VOMITING [None]
